FAERS Safety Report 18407723 (Version 1)
Quarter: 2020Q4

REPORT INFORMATION
  Report Type: Spontaneous
  Country: DE (occurrence: DE)
  Receive Date: 20201020
  Receipt Date: 20201020
  Transmission Date: 20210114
  Serious: Yes (Hospitalization)
  Sender: FDA-Public Use
  Company Number: DE-MYLANLABS-2020M1088103

PATIENT
  Age: 11 Year
  Sex: Male

DRUGS (4)
  1. RISPERIDONE. [Suspect]
     Active Substance: RISPERIDONE
     Indication: ATTENTION DEFICIT HYPERACTIVITY DISORDER
     Dosage: 0.5 MILLIGRAM, QD (IN THE MORNING)
     Route: 065
     Dates: start: 201905
  2. MEDIKINET RETARD [Suspect]
     Active Substance: METHYLPHENIDATE
     Indication: AUTISM SPECTRUM DISORDER
     Dosage: 20 MILLIGRAM, QD (IN THE MORNING)
     Dates: start: 201906
  3. MELATONIN [Suspect]
     Active Substance: MELATONIN
     Indication: PRODUCT USED FOR UNKNOWN INDICATION
     Dosage: 5 MILLIGRAM, QD (IN THE EVENING)
     Route: 065
     Dates: start: 201906
  4. MEDIKINET                          /00083801/ [Suspect]
     Active Substance: METHYLPHENIDATE
     Indication: AUTISM SPECTRUM DISORDER
     Dosage: 5 MILLIGRAM, QD (EARLY AFTERNOON)
     Dates: start: 201906

REACTIONS (3)
  - Haematochezia [Unknown]
  - Diarrhoea [Recovered/Resolved]
  - Clostridial infection [Unknown]
